FAERS Safety Report 20404967 (Version 1)
Quarter: 2022Q1

REPORT INFORMATION
  Report Type: Spontaneous
  Country: US (occurrence: None)
  Receive Date: 20220127
  Receipt Date: 20220127
  Transmission Date: 20220423
  Serious: Yes (Hospitalization)
  Sender: FDA-Public Use
  Company Number: None

PATIENT
  Age: 77 Year
  Sex: Female
  Weight: 93.89 kg

DRUGS (1)
  1. EVUSHELD [Suspect]
     Active Substance: CILGAVIMAB\TIXAGEVIMAB
     Dosage: OTHER FREQUENCY : 150MG/1.5ML ONCE;?
     Route: 030
     Dates: start: 20220117, end: 20220117

REACTIONS (1)
  - Seizure [None]

NARRATIVE: CASE EVENT DATE: 20220119
